FAERS Safety Report 8840763 (Version 1)
Quarter: 2012Q4

REPORT INFORMATION
  Report Type: 
  Country: US (occurrence: US)
  Receive Date: 20121015
  Receipt Date: 20121015
  Transmission Date: 20130627
  Serious: Yes (Other)
  Sender: FDA-Public Use
  Company Number: US-ROCHE-1140405

PATIENT
  Sex: Male
  Weight: 53.35 kg

DRUGS (5)
  1. NUTROPIN AQ [Suspect]
     Indication: HYPOPITUITARISM
     Route: 058
  2. NUTROPIN AQ [Suspect]
     Route: 058
  3. NUTROPIN AQ [Suspect]
     Route: 058
  4. SYNTHROID [Concomitant]
     Route: 065
  5. CORTEF [Concomitant]
     Dosage: 10 mg in the morning and 5 mg in the evening
     Route: 065

REACTIONS (4)
  - Cerebrospinal fluid leakage [Unknown]
  - Dry skin [Unknown]
  - Injection site pain [Unknown]
  - Nocturia [Unknown]
